FAERS Safety Report 7767414-3 (Version None)
Quarter: 2011Q3

REPORT INFORMATION
  Report Type: 
  Country: None (occurrence: None)
  Receive Date: 20110922
  Receipt Date: 20101102
  Transmission Date: 20111222
  Serious: Yes (Other)
  Sender: FDA-Public Use
  Company Number: US-ASTRAZENECA-2010SE52093

PATIENT
  Age: 28 Year
  Sex: Male
  Weight: 117.9 kg

DRUGS (2)
  1. SEROQUEL XR [Suspect]
     Route: 048
  2. SEROQUEL XR [Suspect]
     Dosage: 200 MG IN THE MORNING AND 1200 MG AT NIGHT
     Route: 048

REACTIONS (1)
  - WEIGHT INCREASED [None]
